FAERS Safety Report 12322130 (Version 1)
Quarter: 2016Q2

REPORT INFORMATION
  Report Type: Spontaneous
  Country: US (occurrence: US)
  Receive Date: 20160502
  Receipt Date: 20160502
  Transmission Date: 20160815
  Serious: Yes (Other)
  Sender: FDA-Public Use
  Company Number: PHHY2016US057353

PATIENT
  Sex: Male

DRUGS (3)
  1. THIOTEPA. [Suspect]
     Active Substance: THIOTEPA
     Indication: DESMOPLASTIC SMALL ROUND CELL TUMOUR
     Dosage: 300 MG/M2, QD
     Route: 065
  2. CARBOPLATIN. [Suspect]
     Active Substance: CARBOPLATIN
     Indication: DESMOPLASTIC SMALL ROUND CELL TUMOUR
     Dosage: 700 MG/M2, QD
     Route: 065
  3. TOPOTECAN [Suspect]
     Active Substance: TOPOTECAN\TOPOTECAN HYDROCHLORIDE
     Indication: DESMOPLASTIC SMALL ROUND CELL TUMOUR
     Dosage: 2 MG/M2, QD (ON DAY^S -8, -7, -6, -5, AND -4)
     Route: 041

REACTIONS (4)
  - Malignant neoplasm progression [Unknown]
  - Mucosal inflammation [Unknown]
  - Aspartate aminotransferase increased [Unknown]
  - Desmoplastic small round cell tumour [Unknown]
